FAERS Safety Report 25268025 (Version 1)
Quarter: 2025Q2

REPORT INFORMATION
  Report Type: Report from Study
  Country: US (occurrence: US)
  Receive Date: 20250505
  Receipt Date: 20250505
  Transmission Date: 20250717
  Serious: Yes (Death, Other)
  Sender: TAKEDA
  Company Number: US-TAKEDA-2024TUS111118

PATIENT
  Sex: Male

DRUGS (28)
  1. FRUQUINTINIB [Suspect]
     Active Substance: FRUQUINTINIB
     Indication: Rectal cancer
  2. FRUQUINTINIB [Suspect]
     Active Substance: FRUQUINTINIB
  3. FRUQUINTINIB [Suspect]
     Active Substance: FRUQUINTINIB
  4. FRUQUINTINIB [Suspect]
     Active Substance: FRUQUINTINIB
  5. ALBUTEROL [Concomitant]
     Active Substance: ALBUTEROL
  6. ATORVASTATIN [Concomitant]
     Active Substance: ATORVASTATIN
  7. BYSTOLIC [Concomitant]
     Active Substance: NEBIVOLOL HYDROCHLORIDE
  8. LASIX [Concomitant]
     Active Substance: FUROSEMIDE
  9. HUMALOG [Concomitant]
     Active Substance: INSULIN LISPRO
  10. IBUPROFEN [Concomitant]
     Active Substance: IBUPROFEN
  11. LABETALOL [Concomitant]
     Active Substance: LABETALOL
  12. LANTUS [Concomitant]
     Active Substance: INSULIN GLARGINE
  13. MORPHINE SULFATE [Concomitant]
     Active Substance: MORPHINE SULFATE
  14. NARCAN [Concomitant]
     Active Substance: NALOXONE HYDROCHLORIDE
  15. OLMESARTAN [Concomitant]
     Active Substance: OLMESARTAN
  16. ZOFRAN [Concomitant]
     Active Substance: ONDANSETRON HYDROCHLORIDE
  17. OXYCODONE [Concomitant]
     Active Substance: OXYCODONE
  18. MIRALAX [Concomitant]
     Active Substance: POLYETHYLENE GLYCOL 3350
  19. PROCHLORPERAZINE [Concomitant]
     Active Substance: PROCHLORPERAZINE
  20. TYLENOL [Concomitant]
     Active Substance: ACETAMINOPHEN
  21. SENNA [Concomitant]
     Active Substance: SENNOSIDES
  22. DIBUCAINE [Concomitant]
     Active Substance: DIBUCAINE
  23. FUROSEMIDE [Concomitant]
     Active Substance: FUROSEMIDE
  24. ONDANSETRON [Concomitant]
     Active Substance: ONDANSETRON
  25. POLYETHYLENE GLYCOL [Concomitant]
     Active Substance: POLYETHYLENE GLYCOL
  26. SENNOSIDES [Concomitant]
     Active Substance: SENNOSIDES
  27. KEFLEX [Concomitant]
     Active Substance: CEPHALEXIN
  28. LEVOTHYROXINE [Concomitant]
     Active Substance: LEVOTHYROXINE

REACTIONS (7)
  - Death [Fatal]
  - Oral discomfort [Unknown]
  - Pain [Unknown]
  - Diarrhoea [Unknown]
  - Rash [Recovering/Resolving]
  - Blood pressure increased [Not Recovered/Not Resolved]
  - Stomatitis [Recovering/Resolving]
